FAERS Safety Report 9677331 (Version 1)
Quarter: 2013Q4

REPORT INFORMATION
  Report Type: Spontaneous
  Country: US (occurrence: US)
  Receive Date: 20131108
  Receipt Date: 20131108
  Transmission Date: 20140711
  Serious: No
  Sender: FDA-Public Use
  Company Number: US-PFIZER INC-2013318181

PATIENT
  Age: 53 Year
  Sex: Male
  Weight: 72.56 kg

DRUGS (8)
  1. NEURONTIN [Suspect]
     Indication: NEUROPATHY PERIPHERAL
     Dosage: 400 MG, UNK
  2. MOBIC [Concomitant]
     Dosage: UNK
  3. FLONASE [Concomitant]
     Dosage: UNK
  4. PROTONIX [Concomitant]
     Dosage: UNK
  5. METOPROLOL [Concomitant]
     Dosage: UNK
  6. CLARITIN [Concomitant]
     Dosage: UNK
  7. MAGNESIUM OXIDE [Concomitant]
     Dosage: UNK
  8. LORCET [Concomitant]
     Indication: BACK PAIN
     Dosage: 10 MG OF HYDROCODONE BITARTRATE/650 MG OF PARACETAMOL, UNK

REACTIONS (2)
  - Drug intolerance [Unknown]
  - Abdominal discomfort [Unknown]
